FAERS Safety Report 24985572 (Version 2)
Quarter: 2025Q1

REPORT INFORMATION
  Report Type: Spontaneous
  Country: BR (occurrence: BR)
  Receive Date: 20250219
  Receipt Date: 20250327
  Transmission Date: 20250409
  Serious: Yes (Hospitalization)
  Sender: AMGEN
  Company Number: BR-AMGEN-BRASP2025028826

PATIENT
  Age: 80 Year
  Sex: Female

DRUGS (14)
  1. PROLIA [Suspect]
     Active Substance: DENOSUMAB
     Indication: Osteoporosis
     Dosage: UNK UNK, Q6MO
     Route: 065
     Dates: start: 20190210, end: 20241118
  2. EVENITY [Suspect]
     Active Substance: ROMOSOZUMAB-AQQG
     Indication: Pelvic fracture
     Route: 065
     Dates: start: 202501
  3. EVENITY [Suspect]
     Active Substance: ROMOSOZUMAB-AQQG
     Indication: Osteoporosis
  4. ROSUVASTATIN CALCIUM [Concomitant]
     Active Substance: ROSUVASTATIN CALCIUM
  5. METOPROLOL [Concomitant]
     Active Substance: METOPROLOL
  6. FUROSEMIDE [Concomitant]
     Active Substance: FUROSEMIDE
  7. BROMOPRIDE [Concomitant]
     Active Substance: BROMOPRIDE
  8. ESOMEPRAZOLE [Concomitant]
     Active Substance: ESOMEPRAZOLE
  9. FLUOXETINE [Concomitant]
     Active Substance: FLUOXETINE HYDROCHLORIDE
  10. CANNABIDIOL [Concomitant]
     Active Substance: CANNABIDIOL
  11. VITAMIN B COMPLEX [Concomitant]
     Active Substance: CYANOCOBALAMIN\DEXPANTHENOL\NIACINAMIDE\PYRIDOXINE HYDROCHLORIDE\RIBOFLAVIN 5^-PHOSPHATE SODIUM\THIA
  12. FOLIC ACID [Concomitant]
     Active Substance: FOLIC ACID
  13. Hemax eritron [Concomitant]
  14. PARICALCITOL [Concomitant]
     Active Substance: PARICALCITOL

REACTIONS (5)
  - Acetabulum fracture [Unknown]
  - Drug ineffective [Recovered/Resolved]
  - Arthralgia [Unknown]
  - Balance disorder [Unknown]
  - Articular calcification [Unknown]

NARRATIVE: CASE EVENT DATE: 20241201
